FAERS Safety Report 13903488 (Version 1)
Quarter: 2017Q3

REPORT INFORMATION
  Report Type: Spontaneous
  Country: US (occurrence: US)
  Receive Date: 20170824
  Receipt Date: 20170824
  Transmission Date: 20171127
  Serious: No
  Sender: FDA-Public Use
  Company Number: US-PFIZER INC-2017364986

PATIENT
  Age: 50 Year
  Sex: Female
  Weight: 135.6 kg

DRUGS (1)
  1. IBRANCE [Suspect]
     Active Substance: PALBOCICLIB
     Indication: BREAST CANCER
     Dosage: UNK, CYCLIC (DAY 1 TO 21 EVERY 28 DAYS)
     Route: 048
     Dates: start: 201605

REACTIONS (2)
  - Cognitive disorder [Unknown]
  - Neoplasm progression [Unknown]
